FAERS Safety Report 9700556 (Version 5)
Quarter: 2014Q2

REPORT INFORMATION
  Report Type: Report from Study
  Country: AU (occurrence: AU)
  Receive Date: 20131121
  Receipt Date: 20140604
  Transmission Date: 20141212
  Serious: Yes (Other)
  Sender: FDA-Public Use
  Company Number: PHHY2013AU131147

PATIENT
  Age: 49 Year
  Sex: Male
  Weight: 126 kg

DRUGS (12)
  1. CLOZARIL [Suspect]
     Indication: SCHIZOPHRENIA
     Dosage: 525 MG, UNK
     Dates: start: 20120626
  2. CLOZARIL [Suspect]
     Dosage: 500 MG, BID
     Dates: start: 201311, end: 20131115
  3. ASPIRIN [Concomitant]
  4. IRPRESTAN [Concomitant]
  5. ATORVASTATIN [Concomitant]
  6. TRIFLUOPERAZINE [Concomitant]
  7. DIAZEPAM [Concomitant]
  8. BENZHEXOL [Concomitant]
  9. PANTOPRAZOLE [Concomitant]
  10. BISOPROLOL [Concomitant]
     Dosage: 5 MG, UNK
  11. CANDESARTAN [Concomitant]
     Dosage: 4 MG, DAILY
  12. CANDESARTAN [Concomitant]
     Dosage: 8 MG, DAILY

REACTIONS (15)
  - Left ventricular dysfunction [Recovering/Resolving]
  - Systolic dysfunction [Unknown]
  - Ejection fraction decreased [Unknown]
  - Tricuspid valve incompetence [Unknown]
  - Dilatation atrial [Unknown]
  - Ventricular hypokinesia [Unknown]
  - Diastolic dysfunction [Unknown]
  - Myocarditis [Unknown]
  - Psychotic disorder [Unknown]
  - Electrocardiogram QT prolonged [Unknown]
  - Blood chloride decreased [Unknown]
  - Blood creatine decreased [Unknown]
  - Blood urea decreased [Unknown]
  - Tachycardia [Unknown]
  - Monocyte count increased [Unknown]
